FAERS Safety Report 9025250 (Version 2)
Quarter: 2013Q1

REPORT INFORMATION
  Report Type: Spontaneous
  Country: US (occurrence: US)
  Receive Date: 20130122
  Receipt Date: 20130208
  Transmission Date: 20140127
  Serious: Yes (Hospitalization, Other)
  Sender: FDA-Public Use
  Company Number: US-PFIZER INC-2013023396

PATIENT
  Age: 43 Year
  Sex: Male
  Weight: 92.97 kg

DRUGS (4)
  1. CELEBREX [Suspect]
     Indication: BURSITIS
     Dosage: 200 MG, DAILY
     Route: 048
     Dates: end: 201207
  2. CELEBREX [Suspect]
     Indication: TENDONITIS
  3. ALLOPURINOL [Concomitant]
     Indication: GOUT
     Dosage: 300 MG, DAILY
  4. DIOVAN HCT [Concomitant]
     Dosage: 160/25 MG,DAILY

REACTIONS (7)
  - Intervertebral disc disorder [Unknown]
  - Road traffic accident [Unknown]
  - Lower limb fracture [Unknown]
  - Foot fracture [Unknown]
  - Joint dislocation [Unknown]
  - Bursitis [Unknown]
  - Tendonitis [Unknown]
